FAERS Safety Report 8500243-1 (Version None)
Quarter: 2012Q3

REPORT INFORMATION
  Report Type: 
  Country: None (occurrence: None)
  Receive Date: 20120710
  Receipt Date: 20120706
  Transmission Date: 20120928
  Serious: Yes (Hospitalization, Disabling, Other)
  Sender: FDA-Public Use
  Company Number: PHHY2012GB058200

PATIENT
  Age: 76 Year
  Sex: Male
  Weight: 93 kg

DRUGS (11)
  1. CLOPIDOGREL [Concomitant]
     Indication: CARDIAC FAILURE
     Dosage: 75 MG, QD
     Dates: start: 20020101
  2. RAMIPRIL [Suspect]
     Indication: HYPERTENSION
     Dosage: 10 MG, UNK
     Route: 048
     Dates: start: 20110901
  3. AMLODIPINE [Concomitant]
     Indication: COLITIS MICROSCOPIC
     Dosage: 5 MG, QD
     Route: 048
     Dates: start: 20020101
  4. CO-DYDRAMOL [Concomitant]
     Route: 048
  5. DOXAZOSIN MESYLATE [Concomitant]
     Dosage: 2 MG, QD
     Route: 048
  6. SODIUM BICARBONATE [Concomitant]
     Route: 048
  7. ATENOLOL [Concomitant]
     Dosage: 50 MG, QD
     Route: 048
     Dates: start: 20020101
  8. CIRCADIN [Concomitant]
     Route: 048
  9. TRAMADOL HCL [Concomitant]
     Route: 048
  10. ASACOL [Concomitant]
     Indication: HYPERTENSION
     Dosage: 800 MG, TID
     Route: 048
     Dates: start: 20020101
  11. SIMVASTATIN [Concomitant]
     Dosage: 40 MG, QD
     Route: 048
     Dates: start: 20020101

REACTIONS (7)
  - MALAISE [None]
  - ORTHOSTATIC HYPOTENSION [None]
  - ASTHENIA [None]
  - DYSSTASIA [None]
  - SYNCOPE [None]
  - FALL [None]
  - ABASIA [None]
